FAERS Safety Report 16011750 (Version 5)
Quarter: 2021Q1

REPORT INFORMATION
  Report Type: Spontaneous
  Country: US (occurrence: US)
  Receive Date: 20190227
  Receipt Date: 20210126
  Transmission Date: 20210419
  Serious: No
  Sender: FDA-Public Use
  Company Number: US-PFIZER INC-2019082033

PATIENT
  Age: 15 Year
  Sex: Male
  Weight: 58.97 kg

DRUGS (2)
  1. GENOTROPIN [Suspect]
     Active Substance: SOMATROPIN
     Dosage: 2.6 MG, DAILY
     Dates: start: 20180326
  2. GENOTROPIN [Suspect]
     Active Substance: SOMATROPIN
     Indication: AUTISM SPECTRUM DISORDER
     Dosage: 2 MG, DAILY

REACTIONS (9)
  - Wrong technique in device usage process [Unknown]
  - Insulin-like growth factor decreased [Unknown]
  - Off label use [Unknown]
  - Device issue [Unknown]
  - Aspartate aminotransferase increased [Unknown]
  - Drug dose omission by device [Unknown]
  - Blood bilirubin increased [Unknown]
  - Oedema peripheral [Unknown]
  - Product use in unapproved indication [Unknown]

NARRATIVE: CASE EVENT DATE: 20181204
